FAERS Safety Report 20328830 (Version 1)
Quarter: 2022Q1

REPORT INFORMATION
  Report Type: Spontaneous
  Country: US (occurrence: None)
  Receive Date: 20220112
  Receipt Date: 20220112
  Transmission Date: 20220423
  Serious: Yes (unspecified)
  Sender: FDA-Public Use
  Company Number: None

PATIENT
  Age: 76 Year
  Sex: Female
  Weight: 65.8 kg

DRUGS (3)
  1. PRIVIGEN [Suspect]
     Active Substance: HUMAN IMMUNOGLOBULIN G
     Indication: Selective IgG subclass deficiency
     Dosage: OTHER FREQUENCY : ONCE;?
     Route: 042
     Dates: start: 20211227, end: 20211227
  2. PRIVIGEN [Suspect]
     Active Substance: HUMAN IMMUNOGLOBULIN G
     Indication: Selective IgG subclass deficiency
     Dosage: OTHER FREQUENCY : ONCE;?
     Route: 042
     Dates: start: 20211227, end: 20211227
  3. Normal Saline 0.9% [Concomitant]
     Dates: start: 20211227, end: 20211227

REACTIONS (3)
  - Pruritus [None]
  - Urticaria [None]
  - Throat irritation [None]

NARRATIVE: CASE EVENT DATE: 20211227
